FAERS Safety Report 11877095 (Version 1)
Quarter: 2015Q4

REPORT INFORMATION
  Report Type: Spontaneous
  Country: FR (occurrence: FR)
  Receive Date: 20151229
  Receipt Date: 20151229
  Transmission Date: 20160305
  Serious: Yes (Hospitalization, Other)
  Sender: FDA-Public Use
  Company Number: FR-BRISTOL-MYERS SQUIBB COMPANY-BMS-2015-089463

PATIENT
  Age: 77 Year
  Sex: Male

DRUGS (1)
  1. COUMADINE [Suspect]
     Active Substance: WARFARIN SODIUM
     Indication: ACTIVATED PROTEIN C RESISTANCE
     Route: 048

REACTIONS (5)
  - Subdural haematoma [Recovering/Resolving]
  - Surgery [Recovering/Resolving]
  - Off label use [Unknown]
  - Fall [Recovering/Resolving]
  - Head injury [Recovering/Resolving]

NARRATIVE: CASE EVENT DATE: 20151022
